FAERS Safety Report 10235654 (Version 1)
Quarter: 2014Q2

REPORT INFORMATION
  Report Type: Report from Study
  Country: GB (occurrence: GB)
  Receive Date: 20140613
  Receipt Date: 20140613
  Transmission Date: 20141212
  Serious: Yes (Death)
  Sender: FDA-Public Use
  Company Number: GB-SA-2014SA078084

PATIENT
  Sex: 0

DRUGS (3)
  1. FLUOROURACIL [Suspect]
     Indication: HEAD AND NECK CANCER
     Dosage: ON DAYS 1-5
     Route: 065
  2. CISPLATIN [Suspect]
     Indication: HEAD AND NECK CANCER
     Dosage: ON DAY 1
     Route: 065
  3. DOCETAXEL [Suspect]
     Indication: HEAD AND NECK CANCER
     Dosage: ON DAY 1
     Route: 065

REACTIONS (2)
  - Cerebrovascular accident [Fatal]
  - Off label use [Unknown]
